FAERS Safety Report 21321573 (Version 2)
Quarter: 2022Q3

REPORT INFORMATION
  Report Type: Spontaneous
  Country: FR (occurrence: FR)
  Receive Date: 20220912
  Receipt Date: 20220912
  Transmission Date: 20221027
  Serious: Yes (Hospitalization)
  Sender: FDA-Public Use
  Company Number: None

PATIENT
  Age: 59 Year
  Sex: Female

DRUGS (4)
  1. SIRTURO [Suspect]
     Active Substance: BEDAQUILINE FUMARATE
     Indication: Disseminated tuberculosis
     Route: 048
     Dates: start: 20190902
  2. LAMPRENE [Suspect]
     Active Substance: CLOFAZIMINE
     Indication: Disseminated tuberculosis
     Route: 048
     Dates: start: 20190902
  3. SIVEXTRO [Suspect]
     Active Substance: TEDIZOLID PHOSPHATE
     Indication: Disseminated tuberculosis
     Route: 048
     Dates: start: 20191118
  4. DELAMANID [Suspect]
     Active Substance: DELAMANID
     Indication: Disseminated tuberculosis
     Route: 048
     Dates: start: 20190924

REACTIONS (2)
  - Hepatic cytolysis [Not Recovered/Not Resolved]
  - Cholestasis [Not Recovered/Not Resolved]

NARRATIVE: CASE EVENT DATE: 20200101
